FAERS Safety Report 5507599-2 (Version None)
Quarter: 2007Q4

REPORT INFORMATION
  Report Type: 
  Country: None (occurrence: None)
  Receive Date: 20071102
  Receipt Date: 20071023
  Transmission Date: 20080405
  Serious: Yes (Hospitalization)
  Sender: FDA-Public Use
  Company Number: TPA2007A02168

PATIENT
  Age: 50 Year
  Sex: Male

DRUGS (4)
  1. ACTOS [Suspect]
     Indication: TYPE 2 DIABETES MELLITUS
     Dosage: 15 MG, 1 IN 1 D, PER ORAL
     Route: 048
     Dates: end: 20070901
  2. ZETIA [Concomitant]
  3. LIPITOR [Concomitant]
  4. METFORMIN HCL [Concomitant]

REACTIONS (1)
  - VASCULAR GRAFT [None]
